FAERS Safety Report 16539673 (Version 1)
Quarter: 2019Q3

REPORT INFORMATION
  Report Type: Spontaneous
  Country: US (occurrence: US)
  Receive Date: 20190708
  Receipt Date: 20190708
  Transmission Date: 20191004
  Serious: No
  Sender: FDA-Public Use
  Company Number: US-TEVA-2019-US-1065940

PATIENT
  Sex: Female

DRUGS (1)
  1. CLONIDINE TEVA [Suspect]
     Active Substance: CLONIDINE
     Indication: NERVE INJURY
     Route: 062
     Dates: start: 2004

REACTIONS (3)
  - Product use in unapproved indication [Unknown]
  - Product adhesion issue [Unknown]
  - Drug ineffective [Unknown]
